FAERS Safety Report 12882133 (Version 1)
Quarter: 2016Q4

REPORT INFORMATION
  Report Type: Report from Study
  Country: DE (occurrence: DE)
  Receive Date: 20161025
  Receipt Date: 20161025
  Transmission Date: 20170207
  Serious: Yes (Hospitalization)
  Sender: FDA-Public Use
  Company Number: DE-BIOGEN-2016BI00307877

PATIENT
  Age: 48 Year
  Sex: Female

DRUGS (6)
  1. AMLODIPINE [Concomitant]
     Active Substance: AMLODIPINE BESYLATE
     Indication: HYPERTENSION
     Dosage: 1/2 TABLET ACCORDING TO PLAN
     Route: 065
  2. AVONEX [Suspect]
     Active Substance: INTERFERON BETA-1A
     Indication: MULTIPLE SCLEROSIS
     Route: 030
     Dates: start: 20160521
  3. CAPTOHEXAL [Concomitant]
     Active Substance: CAPTOPRIL
     Indication: HYPERTENSION
     Dosage: 8 MG/12.5 MG
     Route: 065
  4. BISOPROLOL [Concomitant]
     Active Substance: BISOPROLOL
     Indication: HYPERTENSION
     Dosage: 1 IN THE MORNING, HALF IN THE EVENING
     Route: 065
  5. INSULIN [Concomitant]
     Active Substance: INSULIN NOS
     Indication: DIABETES MELLITUS
     Route: 065
     Dates: start: 201409
  6. FUROSEMIDE. [Concomitant]
     Active Substance: FUROSEMIDE
     Indication: OEDEMA
     Route: 065
     Dates: start: 201602

REACTIONS (2)
  - Weight increased [Not Recovered/Not Resolved]
  - Meniscus injury [Recovered/Resolved with Sequelae]

NARRATIVE: CASE EVENT DATE: 201608
